FAERS Safety Report 9229918 (Version 1)
Quarter: 2013Q2

REPORT INFORMATION
  Report Type: Spontaneous
  Country: US (occurrence: None)
  Receive Date: 20130412
  Receipt Date: 20130412
  Transmission Date: 20140414
  Serious: Yes (Hospitalization)
  Sender: FDA-Public Use
  Company Number: None

PATIENT
  Age: 72 Year
  Sex: Female

DRUGS (29)
  1. TRASTUZUMAB [Suspect]
     Indication: BREAST CANCER
     Route: 042
     Dates: start: 20130313
  2. METROPROLOL TARTRATE [Concomitant]
  3. CRESTOR [Concomitant]
  4. FLUCTICASONE [Concomitant]
  5. ASTEPRO [Concomitant]
  6. PRADAXA [Concomitant]
  7. DICLOFENAC [Concomitant]
  8. ALLEGRA [Concomitant]
  9. VITAMIN B-6 [Concomitant]
  10. VITAMIN A [Concomitant]
  11. VITAMIN D3 [Concomitant]
  12. THYMUS [Concomitant]
  13. CALCIUM CITRATE [Concomitant]
  14. MAGNESIUM [Concomitant]
  15. SELENIUM WITH VITAMIN E [Concomitant]
  16. FISH OIL [Concomitant]
  17. SPIRALINA [Concomitant]
  18. GREEN VARIANCE [Concomitant]
  19. ZINC [Concomitant]
  20. VITAMIN B12 [Concomitant]
  21. BENICAR [Concomitant]
  22. VITALITY C [Concomitant]
  23. VITAMIN E [Concomitant]
  24. CO-Q10 [Concomitant]
  25. IMMUNITY SYSTEM WITH IP6 [Concomitant]
  26. RESERVAL FORTE [Concomitant]
  27. CHROMIUM PICOLINATE [Concomitant]
  28. MIRRALAX [Concomitant]
  29. LAPATINIB [Suspect]
     Indication: BREAST CANCER
     Dates: start: 20130313

REACTIONS (6)
  - Epistaxis [None]
  - Renal failure acute [None]
  - Muscular weakness [None]
  - Calculus ureteric [None]
  - Haematuria [None]
  - Toxicity to various agents [None]
